FAERS Safety Report 18547666 (Version 3)
Quarter: 2025Q4

REPORT INFORMATION
  Report Type: Spontaneous
  Country: EU (occurrence: EU)
  Receive Date: 20201125
  Receipt Date: 20251013
  Transmission Date: 20260118
  Serious: Yes (Hospitalization, Other)
  Sender: ELI LILLY AND COMPANY
  Company Number: None

PATIENT
  Age: 66 Year
  Sex: Male
  Weight: 62.5 kg

DRUGS (10)
  1. GEMCITABINE HYDROCHLORIDE [Suspect]
     Active Substance: GEMCITABINE HYDROCHLORIDE
     Indication: Transitional cell cancer of renal pelvis and ureter metastatic
     Dosage: UNK UNK, UNKNOWN
     Route: 042
     Dates: start: 202006
  2. WARFARIN SODIUM [Suspect]
     Active Substance: WARFARIN SODIUM
     Indication: Thrombosis
     Dosage: UNK UNK, UNKNOWN
     Route: 065
     Dates: start: 202005, end: 202006
  3. FLUINDIONE [Suspect]
     Active Substance: FLUINDIONE
     Indication: Thrombosis
     Dosage: UNK UNK, UNKNOWN
     Route: 048
     Dates: start: 202006, end: 20200705
  4. LENOGRASTIM [Suspect]
     Active Substance: LENOGRASTIM
     Indication: Chemotherapy side effect prophylaxis
     Dosage: UNK, DAILY
     Route: 058
     Dates: start: 20200702, end: 20200702
  5. CARBOPLATIN [Suspect]
     Active Substance: CARBOPLATIN
     Indication: Transitional cell cancer of renal pelvis and ureter metastatic
     Dosage: UNK, UNKNOWN
     Route: 042
     Dates: start: 202006
  6. KARDEGIC [Concomitant]
     Active Substance: ASPIRIN DL-LYSINE
     Indication: Product used for unknown indication
     Dosage: 1 DOSAGE FORM, DAILY
     Route: 048
  7. PANTOPRAZOLE [Concomitant]
     Active Substance: PANTOPRAZOLE
     Indication: Product used for unknown indication
     Route: 048
  8. VENLAFAXINE [Concomitant]
     Active Substance: VENLAFAXINE HYDROCHLORIDE
     Indication: Product used for unknown indication
     Dosage: UNK, UNKNOWN
     Route: 048
  9. FOLIC ACID [Concomitant]
     Active Substance: FOLIC ACID
     Indication: Product used for unknown indication
     Dosage: 5 MG, DAILY
     Route: 048
  10. CALCIUM CARBONATE [Concomitant]
     Active Substance: CALCIUM CARBONATE
     Indication: Product used for unknown indication
     Route: 048

REACTIONS (2)
  - Drug reaction with eosinophilia and systemic symptoms [Recovered/Resolved]
  - Pancytopenia [Recovered/Resolved]

NARRATIVE: CASE EVENT DATE: 20200705
